FAERS Safety Report 8906820 (Version 4)
Quarter: 2014Q1

REPORT INFORMATION
  Report Type: Spontaneous
  Country: AU (occurrence: AU)
  Receive Date: 20121114
  Receipt Date: 20140306
  Transmission Date: 20141002
  Serious: Yes (Death, Other)
  Sender: FDA-Public Use
  Company Number: AU-ACTELION-A-CH2012-73559

PATIENT
  Age: 37 Year
  Sex: Male
  Weight: 64.4 kg

DRUGS (5)
  1. TRACLEER [Suspect]
     Indication: PULMONARY ARTERIAL HYPERTENSION
     Dosage: 125 MG, BID
     Route: 048
     Dates: start: 20090802, end: 20140227
  2. TRACLEER [Suspect]
     Dosage: 62.5 MG, BID
     Route: 048
     Dates: start: 20090602, end: 20090801
  3. SILDENAFIL CITRATE [Concomitant]
     Dosage: UNK
     Dates: start: 201110
  4. LASIX [Concomitant]
  5. WARFARIN SODIUM [Concomitant]

REACTIONS (4)
  - Pulmonary arterial hypertension [Fatal]
  - Condition aggravated [Fatal]
  - Dyspnoea [Fatal]
  - Cyanosis [Fatal]
